FAERS Safety Report 13890967 (Version 1)
Quarter: 2017Q3

REPORT INFORMATION
  Report Type: Spontaneous
  Country: GB (occurrence: GB)
  Receive Date: 20170822
  Receipt Date: 20170822
  Transmission Date: 20171127
  Serious: Yes (Life-Threatening, Hospitalization, Other)
  Sender: FDA-Public Use
  Company Number: GB-APOTEX-2017AP016740

PATIENT
  Age: 43 Year
  Sex: Female

DRUGS (1)
  1. QUETIAPINE FILM-COATED TABLETS [Suspect]
     Active Substance: QUETIAPINE
     Indication: SCHIZOAFFECTIVE DISORDER

REACTIONS (4)
  - Exposure during pregnancy [Unknown]
  - Cardiac arrest [Unknown]
  - Peripartum cardiomyopathy [Unknown]
  - Pulseless electrical activity [Unknown]
